FAERS Safety Report 9423513 (Version 2)
Quarter: 2013Q3

REPORT INFORMATION
  Report Type: Spontaneous
  Country: CA (occurrence: CA)
  Receive Date: 20130726
  Receipt Date: 20130809
  Transmission Date: 20140515
  Serious: Yes (Other)
  Sender: FDA-Public Use
  Company Number: CA-ASTRAZENECA-2013SE54136

PATIENT
  Age: 47 Year
  Sex: Female

DRUGS (3)
  1. SYMBICORT TURBUHALER [Suspect]
     Dosage: DAILY DOSAGE: 200 MCG, FREQUENCY: 2 PUFFS BID
     Route: 055
     Dates: start: 20130703, end: 20130708
  2. LIPITOR [Concomitant]
     Indication: HYPERLIPIDAEMIA
     Route: 048
     Dates: start: 201307
  3. ELTROXIN [Concomitant]
     Indication: HYPOTHYROIDISM
     Route: 048
     Dates: start: 2009

REACTIONS (1)
  - Ageusia [Not Recovered/Not Resolved]
